FAERS Safety Report 6823145-5 (Version None)
Quarter: 2010Q3

REPORT INFORMATION
  Report Type: 
  Country: None (occurrence: None)
  Receive Date: 20100702
  Receipt Date: 20090531
  Transmission Date: 20110219
  Serious: Yes (Other)
  Sender: FDA-Public Use
  Company Number: 09-AUR-10445

PATIENT
  Age: 63 Year
  Sex: Female
  Weight: 84.8226 kg

DRUGS (4)
  1. LISINOPRIL [Suspect]
     Indication: RENAL DISORDER
     Dosage: 10 MG - DAILY -
     Dates: start: 20090401
  2. CHANTIX [Suspect]
     Indication: SMOKING CESSATION THERAPY
     Dates: start: 20090401
  3. METFORMIN [Concomitant]
  4. FUROSEMIDE [Concomitant]

REACTIONS (8)
  - AGITATION [None]
  - ANXIETY [None]
  - ASTHENIA [None]
  - BLOOD PRESSURE DECREASED [None]
  - DRUG WITHDRAWAL SYNDROME [None]
  - IRRITABILITY [None]
  - NAUSEA [None]
  - WEIGHT INCREASED [None]
